FAERS Safety Report 16378352 (Version 1)
Quarter: 2019Q2

REPORT INFORMATION
  Report Type: Spontaneous
  Country: US (occurrence: US)
  Receive Date: 20190411
  Receipt Date: 20190411
  Transmission Date: 20190711
  Serious: Yes (Other)
  Sender: FDA-Public Use
  Company Number: None

PATIENT
  Age: 44 Year
  Sex: Female

DRUGS (2)
  1. METRONIDAZOLE VAGINAL GEL 0.75% [Concomitant]
     Active Substance: METRONIDAZOLE
     Dates: start: 20190409, end: 20190411
  2. METRONIDAZOLE VAGINAL GEL [Suspect]
     Active Substance: METRONIDAZOLE
     Route: 067
     Dates: start: 20190409, end: 20190411

REACTIONS (1)
  - Vision blurred [None]

NARRATIVE: CASE EVENT DATE: 20190410
